FAERS Safety Report 25141473 (Version 1)
Quarter: 2025Q2

REPORT INFORMATION
  Report Type: Spontaneous
  Country: US (occurrence: None)
  Receive Date: 20250329
  Receipt Date: 20250329
  Transmission Date: 20250717
  Serious: Yes (Other)
  Sender: FDA-CTU
  Company Number: None

PATIENT
  Age: 71 Year
  Sex: Female
  Weight: 61.65 kg

DRUGS (14)
  1. MOUNJARO [Suspect]
     Active Substance: TIRZEPATIDE
     Indication: Obesity
     Route: 058
     Dates: start: 20230619
  2. MOUNJARO [Suspect]
     Active Substance: TIRZEPATIDE
     Indication: Blood glucose increased
  3. LEVOTHYROXINE [Concomitant]
     Active Substance: LEVOTHYROXINE
  4. FINASTERIDE [Concomitant]
     Active Substance: FINASTERIDE
  5. MINOXIDIL [Concomitant]
     Active Substance: MINOXIDIL
  6. eiiquis [Concomitant]
  7. IPRATROPIUM [Concomitant]
     Active Substance: IPRATROPIUM
  8. MONTELUKAST [Concomitant]
     Active Substance: MONTELUKAST
  9. PRAVASTATIN [Concomitant]
     Active Substance: PRAVASTATIN
  10. METHYLPHENIDATE [Concomitant]
     Active Substance: METHYLPHENIDATE
  11. COLACE [Concomitant]
     Active Substance: DOCUSATE SODIUM
  12. IBUPROFEN [Concomitant]
     Active Substance: IBUPROFEN
  13. MUCINEX [Concomitant]
     Active Substance: GUAIFENESIN
  14. CLARITIN [Concomitant]
     Active Substance: LORATADINE

REACTIONS (4)
  - Nausea [None]
  - Constipation [None]
  - Vomiting [None]
  - Migraine with aura [None]

NARRATIVE: CASE EVENT DATE: 20250107
